FAERS Safety Report 10190535 (Version 1)
Quarter: 2014Q2

REPORT INFORMATION
  Report Type: Spontaneous
  Country: DZ (occurrence: DZ)
  Receive Date: 20140523
  Receipt Date: 20140523
  Transmission Date: 20141212
  Serious: Yes (Life-Threatening, Hospitalization, Disabling)
  Sender: FDA-Public Use
  Company Number: DZ-ABBVIE-14P-003-1239575-00

PATIENT
  Age: 26 Year
  Sex: Male
  Weight: 50 kg

DRUGS (4)
  1. HUMIRA [Suspect]
     Indication: CROHN^S DISEASE
     Route: 058
     Dates: start: 201402
  2. HUMIRA [Suspect]
  3. HUMIRA [Suspect]
     Dates: end: 201403
  4. SOLUPRED [Concomitant]
     Indication: CROHN^S DISEASE
     Route: 048
     Dates: end: 201403

REACTIONS (1)
  - Subileus [Recovered/Resolved]
